FAERS Safety Report 4593418-8 (Version None)
Quarter: 2005Q1

REPORT INFORMATION
  Report Type: 
  Country: None (occurrence: None)
  Receive Date: 20050224
  Receipt Date: 20040615
  Transmission Date: 20050727
  Serious: No
  Sender: FDA-Public Use
  Company Number: US-BRISTOL-MYERS SQUIBB COMPANY-12621181

PATIENT
  Age: 71 Year
  Sex: Female
  Weight: 77 kg

DRUGS (1)
  1. EXCEDRIN (MIGRAINE) [Suspect]
     Dosage: NUMBER OF DOSES: 1 CAPLET 2 TO 3 TIMES A DAY
     Route: 048

REACTIONS (1)
  - SOMNOLENCE [None]
